FAERS Safety Report 18956535 (Version 1)
Quarter: 2021Q1

REPORT INFORMATION
  Report Type: Spontaneous
  Country: US (occurrence: US)
  Receive Date: 20210302
  Receipt Date: 20210302
  Transmission Date: 20210420
  Serious: No
  Sender: FDA-Public Use
  Company Number: US-ORGANON-O2102USA007755

PATIENT
  Age: 26 Year
  Sex: Female
  Weight: 104.31 kg

DRUGS (1)
  1. NEXPLANON [Suspect]
     Active Substance: ETONOGESTREL
     Indication: CONTRACEPTION
     Dosage: 1 IMPLANT, IN THE ARM
     Route: 059
     Dates: start: 20200417

REACTIONS (2)
  - Pain in extremity [Not Recovered/Not Resolved]
  - Contraindicated device used [Unknown]

NARRATIVE: CASE EVENT DATE: 20200417
